FAERS Safety Report 8611963-2 (Version None)
Quarter: 2012Q3

REPORT INFORMATION
  Report Type: 
  Country: None (occurrence: None)
  Receive Date: 20120822
  Receipt Date: 20120813
  Transmission Date: 20120928
  Serious: Yes (Hospitalization)
  Sender: FDA-Public Use
  Company Number: GB-TEVA-353751ISR

PATIENT
  Age: 72 Year
  Sex: Female

DRUGS (2)
  1. NITROFURANTOIN [Suspect]
     Indication: CYSTITIS
     Route: 065
  2. CALCIUM [Concomitant]
     Indication: OSTEOPOROSIS

REACTIONS (2)
  - PNEUMONITIS [None]
  - HAEMOPTYSIS [None]
